FAERS Safety Report 6401752-1 (Version None)
Quarter: 2009Q4

REPORT INFORMATION
  Report Type: 
  Country: None (occurrence: None)
  Receive Date: 20091015
  Receipt Date: 20091002
  Transmission Date: 20100525
  Serious: Yes (Disabling)
  Sender: FDA-Public Use
  Company Number: JP-BAYER-200913700BYL

PATIENT
  Age: 71 Year
  Sex: Male
  Weight: 73 kg

DRUGS (17)
  1. NEXAVAR [Suspect]
     Indication: HEPATIC NEOPLASM MALIGNANT
     Dosage: TOTAL DAILY DOSE: 800 MG  UNIT DOSE: 200 MG
     Route: 048
     Dates: start: 20090604, end: 20090609
  2. URSO 250 [Concomitant]
     Dosage: SINCE BEFORE ADMINISTRATION
     Route: 048
  3. CARNACULIN [Concomitant]
     Dosage: SINCE BEFORE ADMINISTRATION
     Route: 048
  4. URALYT [Concomitant]
     Dosage: SINCE BEFORE ADMINISTRATION
     Route: 048
  5. HARNAL D [Concomitant]
     Dosage: SINCE BEFORE ADMINISTRATION
     Route: 048
  6. ADALAT [Concomitant]
     Dosage: SINCE BEFORE ADMINISTRATION
     Route: 048
  7. RENIVACE [Concomitant]
     Dosage: SINCE BEFORE ADMINISTRATION
     Route: 048
  8. METHYCOBAL [Concomitant]
     Dosage: SINCE BEFORE ADMINISTRATION
     Route: 048
  9. PROHEPARUM [Concomitant]
     Dosage: SINCE BEFORE ADMINISTRATION
     Route: 048
  10. HALCION [Concomitant]
     Dosage: SINCE BEFORE ADMINISTRATION
     Route: 048
  11. GLAKAY [Concomitant]
     Dosage: SINCE BEFORE ADMINISTRATION
     Route: 048
  12. OMEPRAL [Concomitant]
     Dosage: SINCE BEFORE ADMINISTRATION
     Route: 048
  13. AMARYL [Concomitant]
     Dosage: SINCE BEFORE ADMINISTRATION
     Route: 048
  14. LASIX [Concomitant]
     Dosage: SINCE BEFORE ADMINISTRATION
     Route: 048
  15. KINEDAK [Concomitant]
     Dosage: SINCE BEFORE ADMINISTRATION
     Route: 048
  16. SEIBULE [Concomitant]
     Dosage: SINCE BEFORE ADMINISTRATION
     Route: 048
  17. ASPARA POTASSIUM [Concomitant]
     Dosage: SINCE BEFORE ADMINISTRATION
     Route: 048

REACTIONS (1)
  - MALAISE [None]
